FAERS Safety Report 10713005 (Version 1)
Quarter: 2015Q1

REPORT INFORMATION
  Report Type: Spontaneous
  Country: US (occurrence: None)
  Receive Date: 20150114
  Receipt Date: 20150114
  Transmission Date: 20150721
  Serious: Yes (Life-Threatening, Hospitalization)
  Sender: FDA-Public Use
  Company Number: None

PATIENT
  Age: 40 Year
  Sex: Female

DRUGS (2)
  1. INVOKANA [Suspect]
     Active Substance: CANAGLIFLOZIN
     Dosage: ONE ?QD?ORAL??2-3 MONTHS
     Route: 048
  2. INVOKANA [Suspect]
     Active Substance: CANAGLIFLOZIN
     Indication: WEIGHT LOSS DIET
     Dosage: ONE ?QD?ORAL??2-3 MONTHS
     Route: 048

REACTIONS (9)
  - Asthma [None]
  - Cough [None]
  - Urine analysis abnormal [None]
  - Anxiety [None]
  - Feeling abnormal [None]
  - Pyrexia [None]
  - Diabetic ketoacidosis [None]
  - Blood glucose increased [None]
  - Agitation [None]

NARRATIVE: CASE EVENT DATE: 20141220
